FAERS Safety Report 16118758 (Version 1)
Quarter: 2019Q1

REPORT INFORMATION
  Report Type: Report from Study
  Country: US (occurrence: US)
  Receive Date: 20190326
  Receipt Date: 20190326
  Transmission Date: 20190418
  Serious: Yes (Hospitalization)
  Sender: FDA-Public Use
  Company Number: US-EXELIXIS-CABO-19019354

PATIENT
  Sex: Male

DRUGS (15)
  1. VITAMIN B [Concomitant]
     Active Substance: VITAMIN B
  2. FOLIC ACID. [Concomitant]
     Active Substance: FOLIC ACID
  3. OMEPRAZOLE. [Concomitant]
     Active Substance: OMEPRAZOLE
  4. LANTUS [Concomitant]
     Active Substance: INSULIN GLARGINE
  5. POTASSIUM CHLORIDE. [Concomitant]
     Active Substance: POTASSIUM CHLORIDE
  6. ELIQUIS [Concomitant]
     Active Substance: APIXABAN
  7. ISOSORBIDE DINITRATE. [Concomitant]
     Active Substance: ISOSORBIDE DINITRATE
  8. ONDANSETRON ODT DRLA [Concomitant]
     Active Substance: ONDANSETRON
  9. ATORVASTATIN CALCIUM. [Concomitant]
     Active Substance: ATORVASTATIN CALCIUM
  10. FUROSEMIDE. [Concomitant]
     Active Substance: FUROSEMIDE
  11. HUMALOG [Concomitant]
     Active Substance: INSULIN LISPRO
  12. ZOFRAN [Concomitant]
     Active Substance: ONDANSETRON HYDROCHLORIDE
  13. CABOMETYX [Suspect]
     Active Substance: CABOZANTINIB S-MALATE
     Indication: RENAL CANCER
     Dosage: 60 MG, QD
     Route: 048
     Dates: start: 20190216
  14. ASPIRIN. [Concomitant]
     Active Substance: ASPIRIN
  15. VITAMIN B12 [Concomitant]
     Active Substance: CYANOCOBALAMIN

REACTIONS (3)
  - Stomatitis [Unknown]
  - Aphonia [Unknown]
  - Myocardial infarction [Unknown]
